FAERS Safety Report 10084240 (Version 1)
Quarter: 2014Q2

REPORT INFORMATION
  Report Type: Spontaneous
  Country: ZA (occurrence: ZA)
  Receive Date: 20140417
  Receipt Date: 20140417
  Transmission Date: 20141212
  Serious: Yes (Congenital Anomaly)
  Sender: FDA-Public Use
  Company Number: ZA-BAYER-2014-054377

PATIENT
  Age: 4 Day
  Sex: Female
  Weight: 2.03 kg

DRUGS (2)
  1. MIRENA [Suspect]
     Dosage: UNK
     Route: 064
  2. MIRENA [Suspect]
     Dosage: UNK
     Route: 064

REACTIONS (2)
  - Trisomy 21 [None]
  - Heart disease congenital [None]
